FAERS Safety Report 13374814 (Version 2)
Quarter: 2017Q2

REPORT INFORMATION
  Report Type: Spontaneous
  Country: JP (occurrence: JP)
  Receive Date: 20170327
  Receipt Date: 20170403
  Transmission Date: 20170830
  Serious: Yes (Hospitalization, Other)
  Sender: FDA-Public Use
  Company Number: JP-BAYER-2017-053496

PATIENT
  Age: 28 Year
  Sex: Female
  Weight: 57 kg

DRUGS (4)
  1. HEPARIN [Interacting]
     Active Substance: HEPARIN SODIUM
     Dosage: UNK, SIX HOURS POSTOPERATIVELY (C-SECTION) INFUSION
     Route: 042
  2. WARFARIN [Interacting]
     Active Substance: WARFARIN
     Dosage: UNK
     Route: 048
  3. BAYASPIRIN 100 MG [Suspect]
     Active Substance: ASPIRIN
     Dosage: UNK
     Route: 048
  4. HEPARIN [Interacting]
     Active Substance: HEPARIN SODIUM
     Dosage: UNK
     Route: 042

REACTIONS (7)
  - Abdominal wall haematoma [None]
  - Subchorionic haematoma [None]
  - Premature delivery [None]
  - Labelled drug-drug interaction medication error [None]
  - Drug administration error [None]
  - Maternal exposure during pregnancy [Recovered/Resolved]
  - Procedural haemorrhage [None]
